FAERS Safety Report 5407481-5 (Version None)
Quarter: 2007Q3

REPORT INFORMATION
  Report Type: 
  Country: None (occurrence: None)
  Receive Date: 20070807
  Receipt Date: 20070726
  Transmission Date: 20080115
  Serious: Yes (Other)
  Sender: FDA-Public Use
  Company Number: US-ELI_LILLY_AND_COMPANY-US200706004547

PATIENT
  Age: 57 Year
  Sex: Female
  Weight: 63.945 kg

DRUGS (10)
  1. CYMBALTA [Suspect]
     Indication: FIBROMYALGIA
     Dosage: 30 MG, DAILY (1/D)
     Route: 048
     Dates: start: 20060524
  2. CYMBALTA [Suspect]
     Dosage: 60 MG, DAILY (1/D)
     Route: 048
  3. CYMBALTA [Suspect]
     Dosage: 90 MG, DAILY (1/D)
     Route: 048
  4. CYMBALTA [Suspect]
     Dosage: 40 MG, DAILY (1/D)
     Route: 048
  5. CYMBALTA [Suspect]
     Dosage: 50 MG, DAILY (1/D)
     Route: 048
  6. CYMBALTA [Suspect]
     Dosage: 10 MG, DAILY (1/D)
  7. CYMBALTA [Suspect]
     Dosage: UNK MG, UNK
  8. ADDERALL XR 10 [Concomitant]
     Indication: ATTENTION DEFICIT/HYPERACTIVITY DISORDER
     Dosage: UNK MG, UNK
     Dates: start: 20060524
  9. ADDERALL XR 10 [Concomitant]
     Dosage: 20 MG, EACH MORNING
  10. ALPRAZOLAM [Concomitant]
     Indication: GENERALISED ANXIETY DISORDER
     Dosage: 0.25 MG, 2/D

REACTIONS (14)
  - ABDOMINAL DISTENSION [None]
  - COLD SWEAT [None]
  - FATIGUE [None]
  - FEELING ABNORMAL [None]
  - FLUID RETENTION [None]
  - HEART RATE IRREGULAR [None]
  - HYPERTENSION [None]
  - INFLUENZA LIKE ILLNESS [None]
  - NAUSEA [None]
  - PAIN [None]
  - PARAESTHESIA [None]
  - SOMNOLENCE [None]
  - VOMITING [None]
  - WEIGHT INCREASED [None]
